FAERS Safety Report 5915615-9 (Version None)
Quarter: 2008Q4

REPORT INFORMATION
  Report Type: 
  Country: None (occurrence: None)
  Receive Date: 20081010
  Receipt Date: 20080929
  Transmission Date: 20090506
  Serious: Yes (Other)
  Sender: FDA-Public Use
  Company Number: US-PFIZER INC-2008082100

PATIENT
  Sex: Female

DRUGS (3)
  1. GEODON [Suspect]
  2. LAMICTAL [Concomitant]
  3. SERTRALINE [Concomitant]

REACTIONS (2)
  - HALLUCINATION [None]
  - INTENTIONAL DRUG MISUSE [None]
